FAERS Safety Report 8942326 (Version 2)
Quarter: 2013Q1

REPORT INFORMATION
  Report Type: Spontaneous
  Country: US (occurrence: None)
  Receive Date: 20121123
  Receipt Date: 20130204
  Transmission Date: 20140127
  Serious: Yes (Life-Threatening, Other)
  Sender: FDA-Public Use
  Company Number: DEP_00759_2012

PATIENT
  Age: 74 Year
  Sex: Female
  Weight: 104.33 kg

DRUGS (10)
  1. GRALISE [Suspect]
     Indication: NERVE COMPRESSION
     Dosage: (DF)
     Route: 048
     Dates: start: 201210
  2. GRALISE [Suspect]
     Indication: OFF LABEL USE
     Dosage: (DF)
     Route: 048
     Dates: start: 201210
  3. LIPITOR? [Concomitant]
  4. OMEPRAZOLE [Concomitant]
  5. DIOVAN [Concomitant]
  6. ASPIRIN [Concomitant]
  7. VITAMIN B12 [Concomitant]
  8. VITAMIN D3 [Concomitant]
  9. BEE POLLEN [Concomitant]
  10. PROLIA [Concomitant]

REACTIONS (1)
  - Atrial fibrillation [None]
